FAERS Safety Report 14860122 (Version 1)
Quarter: 2018Q2

REPORT INFORMATION
  Report Type: Report from Study
  Country: US (occurrence: US)
  Receive Date: 20180508
  Receipt Date: 20180508
  Transmission Date: 20180711
  Serious: Yes (Other)
  Sender: FDA-Public Use
  Company Number: PHEH2018US016633

PATIENT
  Sex: Female

DRUGS (1)
  1. RYDAPT [Suspect]
     Active Substance: MIDOSTAURIN
     Indication: SYSTEMIC MASTOCYTOSIS
     Route: 065

REACTIONS (4)
  - Anaphylactic reaction [Unknown]
  - Abdominal pain [Unknown]
  - Diarrhoea [Unknown]
  - Somatic symptom disorder [Unknown]
